FAERS Safety Report 23923937 (Version 1)
Quarter: 2024Q2

REPORT INFORMATION
  Report Type: Report from Study
  Country: TR (occurrence: US)
  Receive Date: 20240531
  Receipt Date: 20240531
  Transmission Date: 20240716
  Serious: Yes (Life-Threatening, Hospitalization)
  Sender: FDA-Public Use
  Company Number: TR-MYLANLABS-2024M1047751

PATIENT
  Age: 15 Year
  Sex: Male

DRUGS (1)
  1. VERAPAMIL [Suspect]
     Active Substance: VERAPAMIL HYDROCHLORIDE
     Indication: Product used for unknown indication
     Dosage: 40 DOSAGE FORM (TOTAL DOSE OF 1600MG)
     Route: 048

REACTIONS (7)
  - Hypotension [Recovered/Resolved]
  - Loss of consciousness [Unknown]
  - Respiratory distress [Unknown]
  - Bradycardia [Unknown]
  - Toxicity to various agents [Unknown]
  - Intentional overdose [Unknown]
  - Suicide attempt [Unknown]
